FAERS Safety Report 8616790-8 (Version None)
Quarter: 2012Q3

REPORT INFORMATION
  Report Type: 
  Country: None (occurrence: None)
  Receive Date: 20120823
  Receipt Date: 20120807
  Transmission Date: 20120928
  Serious: Yes (Other)
  Sender: FDA-Public Use
  Company Number: US-009507513-1208USA003052

PATIENT

DRUGS (2)
  1. BONIVA [Suspect]
     Indication: OSTEOPOROSIS
     Dosage: UNK
     Dates: start: 20090601, end: 20100920
  2. FOSAMAX [Suspect]
     Indication: OSTEOPOROSIS
     Dosage: UNK
     Route: 048
     Dates: start: 20090501

REACTIONS (7)
  - INFLUENZA LIKE ILLNESS [None]
  - IMPAIRED HEALING [None]
  - TREATMENT FAILURE [None]
  - OSTEONECROSIS OF JAW [None]
  - TOOTHACHE [None]
  - TEMPOROMANDIBULAR JOINT SYNDROME [None]
  - ALVEOLAR OSTEITIS [None]
